FAERS Safety Report 24581163 (Version 2)
Quarter: 2024Q4

REPORT INFORMATION
  Report Type: Report from Study
  Country: US (occurrence: US)
  Receive Date: 20241105
  Receipt Date: 20241111
  Transmission Date: 20250115
  Serious: Yes (Hospitalization)
  Sender: EISAI
  Company Number: US-Eisai-EC-2024-177911

PATIENT
  Age: 61 Year
  Sex: Male

DRUGS (8)
  1. LENVIMA [Suspect]
     Active Substance: LENVATINIB
     Indication: Renal cancer
     Route: 048
     Dates: start: 20231014, end: 20231117
  2. LENVIMA [Suspect]
     Active Substance: LENVATINIB
     Route: 048
     Dates: start: 20231202, end: 20240317
  3. LENVIMA [Suspect]
     Active Substance: LENVATINIB
     Dosage: STOPPED://2024
     Route: 048
     Dates: start: 20240325, end: 202406
  4. LENVIMA [Suspect]
     Active Substance: LENVATINIB
     Dosage: STOPPED: OCT//2024
     Route: 048
     Dates: start: 20241005
  5. LENVIMA [Suspect]
     Active Substance: LENVATINIB
     Route: 048
     Dates: start: 202410
  6. EVEROLIMUS [Concomitant]
     Active Substance: EVEROLIMUS
  7. HYDROCORTISONE [Concomitant]
     Active Substance: HYDROCORTISONE
  8. IRBESARTAN [Concomitant]
     Active Substance: IRBESARTAN

REACTIONS (8)
  - Pyrexia [Recovering/Resolving]
  - Chills [Unknown]
  - Abdominal pain [Not Recovered/Not Resolved]
  - Stomatitis [Recovering/Resolving]
  - Hypertension [Not Recovered/Not Resolved]
  - Dysphonia [Not Recovered/Not Resolved]
  - Hypoacusis [Not Recovered/Not Resolved]
  - Vomiting [Recovering/Resolving]

NARRATIVE: CASE EVENT DATE: 20241001
